FAERS Safety Report 4876317-3 (Version None)
Quarter: 2005Q4

REPORT INFORMATION
  Report Type: 
  Country: None (occurrence: None)
  Receive Date: 20051206
  Receipt Date: 20050808
  Transmission Date: 20060501
  Serious: No
  Sender: FDA-Public Use
  Company Number: USA0508104829

PATIENT
  Age: 37 Year
  Sex: Female

DRUGS (1)
  1. CYMBALTA [Suspect]
     Indication: DEATH OF PARENT
     Dosage: 60 MG DAY
     Dates: start: 20050101, end: 20050803

REACTIONS (8)
  - ABDOMINAL DISTENSION [None]
  - DIZZINESS [None]
  - FEELING ABNORMAL [None]
  - GASTROOESOPHAGEAL REFLUX DISEASE [None]
  - MOTION SICKNESS [None]
  - NAUSEA [None]
  - SENSATION OF FOREIGN BODY [None]
  - THROAT IRRITATION [None]
